FAERS Safety Report 21840856 (Version 1)
Quarter: 2023Q1

REPORT INFORMATION
  Report Type: Spontaneous
  Country: CA (occurrence: CA)
  Receive Date: 20230110
  Receipt Date: 20230110
  Transmission Date: 20230418
  Serious: Yes (Other)
  Sender: FDA-Public Use
  Company Number: CA-PDX-000043

PATIENT
  Age: 17 Day
  Sex: Female

DRUGS (5)
  1. LEVETIRACETAM [Suspect]
     Active Substance: LEVETIRACETAM
     Indication: Seizure
     Route: 065
  2. LACOSAMIDE [Suspect]
     Active Substance: LACOSAMIDE
     Indication: Seizure
     Route: 065
  3. MIDAZOLAM [Suspect]
     Active Substance: MIDAZOLAM
     Indication: Seizure
     Dosage: UP TO 5 MCG/KG/MIN
     Route: 065
  4. PHENOBARBITAL [Suspect]
     Active Substance: PHENOBARBITAL
     Indication: Seizure
     Route: 065
  5. HYDROCORTISONE [Suspect]
     Active Substance: HYDROCORTISONE
     Indication: Seizure
     Route: 042

REACTIONS (7)
  - Drug resistance [Unknown]
  - Hypernatraemia [Unknown]
  - Metabolic acidosis [Unknown]
  - Arrhythmia [Unknown]
  - Pancytopenia [Unknown]
  - Hypertransaminasaemia [Unknown]
  - Product use issue [Unknown]
